FAERS Safety Report 7701056-0 (Version None)
Quarter: 2011Q3

REPORT INFORMATION
  Report Type: 
  Country: None (occurrence: None)
  Receive Date: 20110822
  Receipt Date: 20110819
  Transmission Date: 20111222
  Serious: Yes (Life-Threatening, Hospitalization)
  Sender: FDA-Public Use
  Company Number: US-B.I. PHARMACEUTICALS,INC./RIDGEFIELD-2011-BP-16812BP

PATIENT
  Age: 74 Year
  Sex: Female

DRUGS (4)
  1. METOPROLOL [Concomitant]
  2. BENICAR [Concomitant]
  3. VYTORIN [Concomitant]
  4. PRADAXA [Suspect]
     Indication: ATRIAL FIBRILLATION
     Dosage: 300 MG
     Dates: start: 20110610, end: 20110630

REACTIONS (1)
  - UPPER GASTROINTESTINAL HAEMORRHAGE [None]
